FAERS Safety Report 7350854-4 (Version None)
Quarter: 2011Q1

REPORT INFORMATION
  Report Type: 
  Country: None (occurrence: None)
  Receive Date: 20110314
  Receipt Date: 20110308
  Transmission Date: 20110831
  Serious: No
  Sender: FDA-Public Use
  Company Number: US-PFIZER INC-2010160813

PATIENT

DRUGS (1)
  1. SOLU-MEDROL [Suspect]
     Indication: SINUS DISORDER
     Dosage: 125 MG, UNK
     Dates: start: 20101113, end: 20101113

REACTIONS (1)
  - PAIN [None]
